FAERS Safety Report 9407850 (Version 2)
Quarter: 2013Q3

REPORT INFORMATION
  Report Type: Spontaneous
  Country: US (occurrence: US)
  Receive Date: 20130718
  Receipt Date: 20130805
  Transmission Date: 20140515
  Serious: Yes (Other)
  Sender: FDA-Public Use
  Company Number: US-PERRIGO-13US004595

PATIENT
  Age: 61 Year
  Sex: Male
  Weight: 79.37 kg

DRUGS (5)
  1. POLYETHYLENE GLYCOL 3350 17G 306 [Suspect]
     Indication: BOWEL PREPARATION
     Dosage: 238 GRAMS AT 1700
     Route: 048
     Dates: start: 20130408, end: 20130408
  2. SIMVASTATIN [Concomitant]
     Indication: BLOOD CHOLESTEROL INCREASED
     Dosage: UNK
     Route: 065
  3. JANUVIA [Concomitant]
     Indication: DIABETES MELLITUS
     Dosage: 100 MG, UNKNOWN
     Route: 065
  4. METFORMIN [Concomitant]
     Indication: DIABETES MELLITUS
     Dosage: 500 MG ER, UNKNOWN
     Route: 065
  5. DULCOLAX [Concomitant]
     Indication: BOWEL PREPARATION
     Dosage: 2 TABLETS, UNK
     Route: 048
     Dates: start: 20130408, end: 20130408

REACTIONS (3)
  - Abdominal pain [Not Recovered/Not Resolved]
  - Constipation [Not Recovered/Not Resolved]
  - Drug ineffective for unapproved indication [Unknown]
